FAERS Safety Report 9873942 (Version 2)
Quarter: 2014Q1

REPORT INFORMATION
  Report Type: Spontaneous
  Country: US (occurrence: US)
  Receive Date: 20140206
  Receipt Date: 20140206
  Transmission Date: 20141002
  Serious: No
  Sender: FDA-Public Use
  Company Number: US-ACORDA-ACO_34087_2013

PATIENT
  Age: 44 Year
  Sex: Male

DRUGS (2)
  1. AMPYRA [Suspect]
     Indication: GAIT DISTURBANCE
     Dosage: 10 MG, BID
     Route: 048
     Dates: start: 20110811
  2. TYSABRI [Concomitant]
     Indication: PRODUCT USED FOR UNKNOWN INDICATION
     Dosage: 300 MG, MONTHLY
     Route: 042
     Dates: start: 20111208

REACTIONS (6)
  - Raynaud^s phenomenon [Recovered/Resolved]
  - Gait disturbance [Not Recovered/Not Resolved]
  - Diplopia [Recovered/Resolved]
  - Head titubation [Unknown]
  - Dysarthria [Unknown]
  - Drug effect decreased [Not Recovered/Not Resolved]
